FAERS Safety Report 23235564 (Version 2)
Quarter: 2023Q4

REPORT INFORMATION
  Report Type: Spontaneous
  Country: US (occurrence: US)
  Receive Date: 20231128
  Receipt Date: 20231128
  Transmission Date: 20240109
  Serious: No
  Sender: FDA-Public Use
  Company Number: US-PFIZER INC-PV202300189781

PATIENT
  Sex: Female

DRUGS (1)
  1. PAXLOVID [Suspect]
     Active Substance: NIRMATRELVIR\RITONAVIR
     Indication: COVID-19 treatment
     Dosage: UNK
     Dates: start: 20231116

REACTIONS (5)
  - Rash [Unknown]
  - Lacrimation increased [Unknown]
  - Pruritus [Unknown]
  - Chest discomfort [Unknown]
  - Expired product administered [Unknown]

NARRATIVE: CASE EVENT DATE: 20231116
